FAERS Safety Report 24270835 (Version 1)
Quarter: 2024Q3

REPORT INFORMATION
  Report Type: Spontaneous
  Country: IT (occurrence: IT)
  Receive Date: 20240831
  Receipt Date: 20240831
  Transmission Date: 20241017
  Serious: Yes (Hospitalization, Other)
  Sender: AUROBINDO
  Company Number: IT-AUROBINDO-AUR-APL-2022-014065

PATIENT
  Age: 43 Year
  Sex: Male

DRUGS (20)
  1. FEBUXOSTAT [Suspect]
     Active Substance: FEBUXOSTAT
     Indication: Hyperuricaemia
     Dosage: 80 MILLIGRAM, ONCE A DAY
     Route: 065
  2. FEBUXOSTAT [Suspect]
     Active Substance: FEBUXOSTAT
     Indication: Gouty tophus
     Dosage: 0.1 MILLIGRAM, ONCE A DAY
     Route: 048
  3. FEBUXOSTAT [Suspect]
     Active Substance: FEBUXOSTAT
     Indication: Gout
     Dosage: 0.2 MILLIGRAM, ONCE A DAY
     Route: 048
  4. FEBUXOSTAT [Suspect]
     Active Substance: FEBUXOSTAT
     Dosage: 0.3 MILLIGRAM, ONCE A DAY
     Route: 048
  5. FEBUXOSTAT [Suspect]
     Active Substance: FEBUXOSTAT
     Dosage: 0.6 MILLIGRAM, ONCE A DAY
     Route: 048
  6. FEBUXOSTAT [Suspect]
     Active Substance: FEBUXOSTAT
     Dosage: 0.5 MILLIGRAM, ONCE A DAY
     Route: 048
  7. FEBUXOSTAT [Suspect]
     Active Substance: FEBUXOSTAT
     Dosage: 1 MILLIGRAM, ONCE A DAY
     Route: 048
  8. FEBUXOSTAT [Suspect]
     Active Substance: FEBUXOSTAT
     Dosage: 2 MILLIGRAM, ONCE A DAY
     Route: 048
  9. FEBUXOSTAT [Suspect]
     Active Substance: FEBUXOSTAT
     Dosage: 4 MILLIGRAM, ONCE A DAY
     Route: 048
  10. FEBUXOSTAT [Suspect]
     Active Substance: FEBUXOSTAT
     Dosage: 6 MILLIGRAM, ONCE A DAY
     Route: 048
  11. FEBUXOSTAT [Suspect]
     Active Substance: FEBUXOSTAT
     Dosage: 8 MILLIGRAM, ONCE A DAY
     Route: 048
  12. FEBUXOSTAT [Suspect]
     Active Substance: FEBUXOSTAT
     Dosage: 16 MILLIGRAM, ONCE A DAY
     Route: 048
  13. FEBUXOSTAT [Suspect]
     Active Substance: FEBUXOSTAT
     Dosage: 24 MILLIGRAM, ONCE A DAY
     Route: 048
  14. FEBUXOSTAT [Suspect]
     Active Substance: FEBUXOSTAT
     Dosage: 32 MILLIGRAM, ONCE A DAY
     Route: 048
  15. FEBUXOSTAT [Suspect]
     Active Substance: FEBUXOSTAT
     Dosage: 40 MILLIGRAM, ONCE A DAY
     Route: 048
  16. ALLOPURINOL [Suspect]
     Active Substance: ALLOPURINOL
     Indication: Gout
     Dosage: 300 MILLIGRAM, ONCE A DAY
     Route: 065
  17. ALLOPURINOL [Suspect]
     Active Substance: ALLOPURINOL
     Indication: Gouty tophus
  18. CITRIC ACID MONOHYDRATE\POTASSIUM CITRATE\TRISODIUM CITRATE DIHYDRATE [Suspect]
     Active Substance: CITRIC ACID MONOHYDRATE\POTASSIUM CITRATE\TRISODIUM CITRATE DIHYDRATE
     Indication: Product used for unknown indication
     Dosage: UNK
     Route: 065
  19. COLCHICINE [Concomitant]
     Active Substance: COLCHICINE
     Indication: Gout
     Dosage: UNK
     Route: 065
  20. Uralyt u [Concomitant]
     Indication: Hyperuricaemia
     Dosage: UNK
     Route: 065

REACTIONS (5)
  - Rash maculo-papular [Recovered/Resolved]
  - Stevens-Johnson syndrome [Recovered/Resolved]
  - Hypersensitivity [Recovered/Resolved]
  - Pruritus [Recovered/Resolved]
  - Drug ineffective [Unknown]
